FAERS Safety Report 12286878 (Version 1)
Quarter: 2016Q2

REPORT INFORMATION
  Report Type: Spontaneous
  Country: US (occurrence: US)
  Receive Date: 20160420
  Receipt Date: 20160420
  Transmission Date: 20160815
  Serious: No
  Sender: FDA-Public Use
  Company Number: US-MDT-ADR-2016-00508

PATIENT
  Age: 42 Year
  Sex: Female

DRUGS (2)
  1. BACLOFEN. [Suspect]
     Active Substance: BACLOFEN
     Dosage: 380MCG/DAY
     Route: 037
  2. BACLOFEN. [Suspect]
     Active Substance: BACLOFEN
     Route: 037

REACTIONS (5)
  - Muscle tightness [Unknown]
  - Hypotonia [Unknown]
  - Tongue biting [Unknown]
  - Incontinence [Unknown]
  - Somnolence [Unknown]
